FAERS Safety Report 8818770 (Version 2)
Quarter: 2014Q3

REPORT INFORMATION
  Report Type: Report from Study
  Country: US (occurrence: US)
  Receive Date: 20121001
  Receipt Date: 20140912
  Transmission Date: 20150326
  Serious: Yes (Other)
  Sender: FDA-Public Use
  Company Number: US-ROCHE-1130121

PATIENT
  Sex: Female

DRUGS (1)
  1. HERCEPTIN [Suspect]
     Active Substance: TRASTUZUMAB
     Indication: BREAST CANCER METASTATIC
     Route: 065
     Dates: start: 199808

REACTIONS (7)
  - Liver disorder [Unknown]
  - Pain [Unknown]
  - Hypophagia [Unknown]
  - Metastases to liver [Unknown]
  - Anaemia [Unknown]
  - Bone lesion [Unknown]
  - Disease progression [Unknown]
